FAERS Safety Report 10128574 (Version 1)
Quarter: 2014Q2

REPORT INFORMATION
  Report Type: Spontaneous
  Country: CA (occurrence: CA)
  Receive Date: 20140428
  Receipt Date: 20140428
  Transmission Date: 20141212
  Serious: Yes (Other)
  Sender: FDA-Public Use
  Company Number: CA-JNJFOC-20140218524

PATIENT
  Sex: 0

DRUGS (7)
  1. RISPERIDONE [Suspect]
     Indication: SLEEP DISORDER
     Route: 065
  2. VALACYCLOVIR HYDROCHLORIDE [Concomitant]
     Indication: HERPES ZOSTER
     Route: 065
  3. VENLAFAXINE HCL [Concomitant]
     Indication: DEPRESSION
     Route: 065
  4. PLAVIX [Concomitant]
     Indication: DRESSLER^S SYNDROME
     Route: 065
  5. TECTA [Concomitant]
     Indication: GASTROOESOPHAGEAL REFLUX DISEASE
     Route: 065
  6. TRAZODONE HCL [Concomitant]
     Indication: INSOMNIA
     Route: 065
  7. VALSARTAN [Concomitant]
     Indication: HYPERTENSION

REACTIONS (2)
  - Hallucination, auditory [Unknown]
  - Off label use [Unknown]
